FAERS Safety Report 4607727-7 (Version None)
Quarter: 2005Q1

REPORT INFORMATION
  Report Type: 
  Country: None (occurrence: None)
  Receive Date: 20050314
  Receipt Date: 20050228
  Transmission Date: 20050727
  Serious: Yes (Life-Threatening)
  Sender: FDA-Public Use
  Company Number: FR-ROCHE-396847

PATIENT
  Age: 60 Year
  Sex: Male

DRUGS (2)
  1. VALIUM [Suspect]
     Route: 042
     Dates: start: 20050117, end: 20050117
  2. PRODILANTIN [Suspect]
     Route: 042
     Dates: start: 20050117, end: 20050117

REACTIONS (4)
  - CEREBROVASCULAR DISORDER [None]
  - HAEMODYNAMIC INSTABILITY [None]
  - HYPOTENSION [None]
  - VENTRICULAR TACHYCARDIA [None]
